FAERS Safety Report 10712125 (Version 1)
Quarter: 2015Q1

REPORT INFORMATION
  Report Type: Spontaneous
  Country: VE (occurrence: VE)
  Receive Date: 20150114
  Receipt Date: 20150114
  Transmission Date: 20150721
  Serious: Yes (Other)
  Sender: FDA-Public Use
  Company Number: PHHY2015VE003960

PATIENT
  Age: 18 Year
  Sex: Female

DRUGS (2)
  1. TRILEPTAL [Suspect]
     Active Substance: OXCARBAZEPINE
     Indication: SEIZURE
     Dosage: 1200 MG, QD
     Route: 048
  2. DEPAKINE [Concomitant]
     Active Substance: VALPROATE SODIUM
     Indication: SEIZURE
     Route: 065

REACTIONS (5)
  - Malaise [Not Recovered/Not Resolved]
  - Paralysis [Not Recovered/Not Resolved]
  - Headache [Not Recovered/Not Resolved]
  - Anxiety [Not Recovered/Not Resolved]
  - Seizure [Not Recovered/Not Resolved]

NARRATIVE: CASE EVENT DATE: 20150112
